FAERS Safety Report 9380617 (Version 2)
Quarter: 2013Q3

REPORT INFORMATION
  Report Type: Spontaneous
  Country: DE (occurrence: JP)
  Receive Date: 20130702
  Receipt Date: 20130723
  Transmission Date: 20140515
  Serious: Yes (Life-Threatening, Hospitalization)
  Sender: FDA-Public Use
  Company Number: JP-BRACCO-007191

PATIENT
  Age: 66 Year
  Sex: Male
  Weight: 66 kg

DRUGS (1)
  1. IOPAMIRON [Suspect]
     Indication: COMPUTERISED TOMOGRAM
     Dosage: ADMINISTERED AT 14:36
     Route: 042
     Dates: start: 20130621, end: 20130621

REACTIONS (1)
  - Anaphylactic shock [Recovered/Resolved]
